FAERS Safety Report 6256018-X (Version None)
Quarter: 2009Q2

REPORT INFORMATION
  Report Type: 
  Country: None (occurrence: None)
  Receive Date: 20090630
  Receipt Date: 20090630
  Transmission Date: 20091009
  Serious: No
  Sender: FDA-Public Use
  Company Number: None

PATIENT
  Age: 61 Year
  Sex: Female
  Weight: 63.5036 kg

DRUGS (3)
  1. HYDROCODONE BITARTRATE + ACETAMINOPHEN [Suspect]
     Indication: HAEMATOMA
     Dosage: 1 TABLET EVERY 4 HOURS PO
     Route: 048
     Dates: start: 20031101, end: 20040401
  2. HYDROCODONE BITARTRATE + ACETAMINOPHEN [Suspect]
     Indication: INFECTION
     Dosage: 1 TABLET EVERY 4 HOURS PO
     Route: 048
     Dates: start: 20031101, end: 20040401
  3. HYDROCODONE BITARTRATE + ACETAMINOPHEN [Suspect]
     Indication: PAIN
     Dosage: 1 TABLET EVERY 4 HOURS PO
     Route: 048
     Dates: start: 20031101, end: 20040401

REACTIONS (5)
  - BILIARY CIRRHOSIS PRIMARY [None]
  - FATIGUE [None]
  - OSTEOPOROSIS [None]
  - PRURITUS [None]
  - SPINAL COMPRESSION FRACTURE [None]
